FAERS Safety Report 18008660 (Version 1)
Quarter: 2020Q3

REPORT INFORMATION
  Report Type: Spontaneous
  Country: US (occurrence: US)
  Receive Date: 20200710
  Receipt Date: 20200710
  Transmission Date: 20201103
  Serious: Yes (Hospitalization)
  Sender: FDA-Public Use
  Company Number: US-VIIV HEALTHCARE LIMITED-US2020AMR124279

PATIENT
  Age: 36 Year
  Sex: Male

DRUGS (1)
  1. TRIUMEQ [Suspect]
     Active Substance: ABACAVIR SULFATE\DOLUTEGRAVIR SODIUM\LAMIVUDINE
     Indication: PRODUCT USED FOR UNKNOWN INDICATION
     Dosage: 1 DF, QD ((600 MG OF ABACAVIR, 50 MG OF DOLUTEGRAVIR, AND 300 MG OF LAMIVUDINE ONCE A DAY)
     Route: 065
     Dates: start: 20190626

REACTIONS (3)
  - Product dose omission issue [Unknown]
  - Coronavirus infection [Unknown]
  - Ill-defined disorder [Unknown]
